FAERS Safety Report 25059839 (Version 1)
Quarter: 2025Q1

REPORT INFORMATION
  Report Type: Spontaneous
  Country: PT (occurrence: PT)
  Receive Date: 20250310
  Receipt Date: 20250310
  Transmission Date: 20250408
  Serious: Yes (Other)
  Sender: SANOFI AVENTIS
  Company Number: PT-SA-2025SA069487

PATIENT
  Age: 47 Year
  Sex: Male

DRUGS (3)
  1. DUPILUMAB [Suspect]
     Active Substance: DUPILUMAB
     Indication: Nasal polyps
     Dates: start: 202203
  2. DUPILUMAB [Suspect]
     Active Substance: DUPILUMAB
     Dosage: 300 MG, QOW
     Dates: start: 2022
  3. CORTICOSTEROID NOS [Concomitant]
     Active Substance: CORTICOSTEROID NOS
     Indication: Nasal polyps

REACTIONS (5)
  - Graves^ disease [Unknown]
  - Irritability [Unknown]
  - Temperature intolerance [Unknown]
  - Hyperthyroidism [Unknown]
  - Goitre [Unknown]

NARRATIVE: CASE EVENT DATE: 20220101
